FAERS Safety Report 8094360-0 (Version None)
Quarter: 2012Q1

REPORT INFORMATION
  Report Type: 
  Country: None (occurrence: None)
  Receive Date: 20120130
  Receipt Date: 20120123
  Transmission Date: 20120608
  Serious: No
  Sender: FDA-Public Use
  Company Number: US-PFIZER INC-2012019399

PATIENT
  Sex: Male
  Weight: 81.6 kg

DRUGS (5)
  1. PROMETHAZINE [Concomitant]
     Dosage: 25 MG, UNK
  2. OXYCODONE [Concomitant]
     Dosage: 5 MG, UNK
  3. BEANO [Concomitant]
     Dosage: UNK
  4. SUTENT [Suspect]
     Dosage: 62.5 MG (1-50 MG AND 1-12.5 MG CAPSULES EVERY DAY FOR 28 DAYS
     Route: 048
  5. MORPHINE SULFATE [Concomitant]
     Dosage: 100 MG, UNK

REACTIONS (4)
  - SKIN REACTION [None]
  - NAUSEA [None]
  - CONSTIPATION [None]
  - GASTROINTESTINAL INFECTION [None]
